FAERS Safety Report 7367542-0 (Version None)
Quarter: 2011Q1

REPORT INFORMATION
  Report Type: 
  Country: None (occurrence: None)
  Receive Date: 20110311
  Receipt Date: 20110225
  Transmission Date: 20110831
  Serious: Yes (Hospitalization)
  Sender: FDA-Public Use
  Company Number: 2011MA001859

PATIENT
  Age: 6 Month
  Sex: Male

DRUGS (1)
  1. PROPRANOLOL HCL [Suspect]
     Indication: CONVULSION
     Dosage: 2 MG/KG

REACTIONS (3)
  - HYPERPHAGIA [None]
  - CONVULSION [None]
  - HYPOGLYCAEMIA [None]
